FAERS Safety Report 8250555-4 (Version None)
Quarter: 2012Q2

REPORT INFORMATION
  Report Type: 
  Country: None (occurrence: None)
  Receive Date: 20120402
  Receipt Date: 20120328
  Transmission Date: 20120825
  Serious: Yes (Life-Threatening)
  Sender: FDA-Public Use
  Company Number: IT-PFIZER INC-2012080120

PATIENT
  Age: 88 Year
  Sex: Female

DRUGS (1)
  1. PIPERACILLIN AND TAZOBACTAM [Suspect]
     Indication: PNEUMONIA BACTERIAL
     Dosage: 13,5 G DAILY
     Route: 042
     Dates: start: 20120315, end: 20120321

REACTIONS (1)
  - BLOOD SODIUM INCREASED [None]
